FAERS Safety Report 15960023 (Version 6)
Quarter: 2019Q2

REPORT INFORMATION
  Report Type: Spontaneous
  Country: US (occurrence: US)
  Receive Date: 20190214
  Receipt Date: 20190423
  Transmission Date: 20190711
  Serious: Yes (Other)
  Sender: FDA-Public Use
  Company Number: US-GLAXOSMITHKLINE-US2019GSK026987

PATIENT
  Sex: Female

DRUGS (3)
  1. PREVACID [Suspect]
     Active Substance: LANSOPRAZOLE
     Indication: PRODUCT USED FOR UNKNOWN INDICATION
     Dosage: UNK
     Route: 065
  2. ESOMEPRAZOLE. [Suspect]
     Active Substance: ESOMEPRAZOLE MAGNESIUM
     Indication: GASTROOESOPHAGEAL REFLUX DISEASE
     Dosage: 40 MG, UNK
     Route: 048
  3. PANTOPRAZOLE [Suspect]
     Active Substance: PANTOPRAZOLE
     Indication: GASTROOESOPHAGEAL REFLUX DISEASE
     Dosage: 40 MG, UNK
     Route: 048

REACTIONS (11)
  - Hypertensive nephropathy [Unknown]
  - Renal disorder [Unknown]
  - Acute kidney injury [Unknown]
  - Dysuria [Unknown]
  - Hydronephrosis [Unknown]
  - Haematuria [Unknown]
  - Nephrolithiasis [Unknown]
  - Pyelonephritis acute [Unknown]
  - Proteinuria [Unknown]
  - Chronic kidney disease [Unknown]
  - Renal failure [Unknown]
